FAERS Safety Report 12992318 (Version 1)
Quarter: 2016Q4

REPORT INFORMATION
  Report Type: Spontaneous
  Country: RO (occurrence: RO)
  Receive Date: 20161201
  Receipt Date: 20161201
  Transmission Date: 20170207
  Serious: Yes (Other)
  Sender: FDA-Public Use
  Company Number: RO-ALEMBIC PHARMACUETICALS LIMITED-2016SCAL000961

PATIENT

DRUGS (2)
  1. ARIPIPRAZOLE. [Suspect]
     Active Substance: ARIPIPRAZOLE
     Indication: SCHIZOPHRENIA
     Dosage: UNK
  2. ARIPIPRAZOLE. [Suspect]
     Active Substance: ARIPIPRAZOLE
     Indication: BIPOLAR DISORDER

REACTIONS (32)
  - Body mass index increased [Unknown]
  - Constipation [Unknown]
  - Blood triglycerides abnormal [Unknown]
  - Orthostatic hypotension [Unknown]
  - Weight decreased [Unknown]
  - Rash [Unknown]
  - Suicidal ideation [Unknown]
  - Off label use [Unknown]
  - Headache [Unknown]
  - Arrhythmia [Unknown]
  - High density lipoprotein abnormal [Unknown]
  - Amenorrhoea [Unknown]
  - Nausea [Unknown]
  - Tremor [Unknown]
  - Anxiety [Unknown]
  - Agitation [Unknown]
  - Cognitive disorder [Unknown]
  - Blood glucose increased [Unknown]
  - Dysmenorrhoea [Unknown]
  - Blood insulin abnormal [Unknown]
  - Extrapyramidal disorder [Unknown]
  - Electrocardiogram QT prolonged [Unknown]
  - Vomiting [Unknown]
  - Diarrhoea [Unknown]
  - Blood bilirubin increased [Unknown]
  - Somnolence [Unknown]
  - Akathisia [Unknown]
  - Dyskinesia [Unknown]
  - Insomnia [Unknown]
  - Aggression [Unknown]
  - Tachycardia [Unknown]
  - Weight increased [Unknown]
